FAERS Safety Report 9503621 (Version 1)
Quarter: 2013Q1

REPORT INFORMATION
  Report Type: Spontaneous
  Country: US (occurrence: None)
  Receive Date: 20130130
  Receipt Date: 20130130
  Transmission Date: 20140127
  Serious: Yes (Other)
  Sender: FDA-Public Use
  Company Number: US201211004138

PATIENT
  Sex: Female

DRUGS (1)
  1. BYDUREON [Suspect]
     Route: 058
     Dates: end: 201211

REACTIONS (1)
  - Hypersensitivity [None]
